FAERS Safety Report 15136273 (Version 1)
Quarter: 2018Q3

REPORT INFORMATION
  Report Type: Spontaneous
  Country: US (occurrence: US)
  Receive Date: 20180712
  Receipt Date: 20180712
  Transmission Date: 20181010
  Serious: Yes (Death, Hospitalization)
  Sender: FDA-Public Use
  Company Number: US-SANIK-2018SA178130AA

PATIENT
  Age: 61 Year
  Sex: Female
  Weight: 80.8 kg

DRUGS (26)
  1. METOPROLOL. [Concomitant]
     Active Substance: METOPROLOL
     Dosage: 200 MG, BID
     Route: 065
     Dates: start: 1997, end: 20080611
  2. FOSAPREPITANT [Concomitant]
     Active Substance: FOSAPREPITANT
     Dosage: UNK
     Route: 065
     Dates: start: 20080520, end: 20080520
  3. CP 870,893 [Suspect]
     Active Substance: SELICRELUMAB
     Indication: LEIOMYOSARCOMA METASTATIC
     Dosage: 16 MG, Q3W
     Route: 042
     Dates: start: 20080527, end: 20080527
  4. DEXAMETHASONE. [Concomitant]
     Active Substance: DEXAMETHASONE
     Dosage: UNK
     Route: 065
     Dates: start: 20080519, end: 20080611
  5. ONDANSETRON [Concomitant]
     Active Substance: ONDANSETRON
     Dosage: UNK
     Route: 065
     Dates: start: 20080519
  6. VICODIN [Concomitant]
     Active Substance: ACETAMINOPHEN\HYDROCODONE BITARTRATE
     Dosage: 5 PER 500 MG PRN
     Route: 065
     Dates: start: 20071126, end: 20080611
  7. APREPITANT. [Concomitant]
     Active Substance: APREPITANT
     Dosage: UNK
     Route: 065
     Dates: start: 20080501
  8. HYDRALAZINE [Concomitant]
     Active Substance: HYDRALAZINE HYDROCHLORIDE
     Dosage: 25 MG, TID
     Route: 065
     Dates: start: 1997, end: 20080611
  9. MEPERIDINE HYDROCHLORIDE. [Concomitant]
     Active Substance: MEPERIDINE HYDROCHLORIDE
     Dosage: UNK
     Route: 065
     Dates: start: 20080527
  10. HYDROCODONE/ACETAMINOPHEN [Concomitant]
     Active Substance: ACETAMINOPHEN\HYDROCODONE
     Dosage: UNK
     Route: 065
     Dates: start: 20071126
  11. PLAVIX [Suspect]
     Active Substance: CLOPIDOGREL BISULFATE
     Indication: TRANSIENT ISCHAEMIC ATTACK
     Dosage: 75 MG, QD
     Route: 065
     Dates: start: 200805
  12. PACLITAXEL. [Suspect]
     Active Substance: PACLITAXEL
     Indication: LEIOMYOSARCOMA
     Dosage: 276 MG, Q3W
     Route: 042
     Dates: start: 20080520, end: 20080520
  13. ALPRAZOLAM. [Concomitant]
     Active Substance: ALPRAZOLAM
     Dosage: 2 MG, PRN, 3 TIMES A DAY
     Route: 065
  14. TOPROL XL [Concomitant]
     Active Substance: METOPROLOL SUCCINATE
     Dosage: UNK
     Route: 065
     Dates: start: 19970101
  15. ZESTRIL [Concomitant]
     Active Substance: LISINOPRIL
     Dosage: 40 MG, QD
     Route: 065
     Dates: start: 1997, end: 20080611
  16. IRON [Concomitant]
     Active Substance: IRON
     Dosage: UNK
     Route: 065
     Dates: start: 20070101
  17. PARAFON FORTE [Concomitant]
     Active Substance: CHLORZOXAZONE
     Dosage: UNK
     Route: 065
     Dates: start: 20060101
  18. DIPHENHYDRAMINE HYDROCHLORIDE. [Concomitant]
     Active Substance: DIPHENHYDRAMINE HYDROCHLORIDE
     Dosage: UNK
     Route: 065
     Dates: start: 20080520
  19. RANITIDINE HYDROCHLORIDE. [Concomitant]
     Active Substance: RANITIDINE HYDROCHLORIDE
     Dosage: UNK
     Route: 065
     Dates: start: 20080520, end: 20080520
  20. PALONOSETRON. [Concomitant]
     Active Substance: PALONOSETRON HYDROCHLORIDE
     Dosage: UNK
     Route: 065
     Dates: start: 20070731
  21. CARBOPLATIN. [Suspect]
     Active Substance: CARBOPLATIN
     Dosage: 993 MG, Q3W
     Route: 042
     Dates: start: 20080520, end: 20080520
  22. ACETYLSALICYLIC ACID [Concomitant]
     Active Substance: ASPIRIN
     Dosage: UNK
     Route: 065
     Dates: start: 2002
  23. FENTANYL. [Concomitant]
     Active Substance: FENTANYL
     Dosage: 75 UG, QD
     Route: 062
     Dates: start: 20080314
  24. ZETIA [Concomitant]
     Active Substance: EZETIMIBE
     Dosage: 10 MG, QD
     Route: 065
     Dates: start: 2004, end: 20080611
  25. ACETAMINOPHEN. [Concomitant]
     Active Substance: ACETAMINOPHEN
     Dosage: UNK
     Route: 065
     Dates: start: 20080527
  26. LORAZEPAM. [Concomitant]
     Active Substance: LORAZEPAM
     Dosage: UNK
     Route: 065
     Dates: start: 20071120

REACTIONS (6)
  - Fibrin D dimer increased [None]
  - Blood glucose increased [None]
  - Cerebrovascular accident [Fatal]
  - Aspartate aminotransferase increased [None]
  - Malignant neoplasm progression [None]
  - Blood alkaline phosphatase increased [None]

NARRATIVE: CASE EVENT DATE: 20080601
